FAERS Safety Report 9266995 (Version 1)
Quarter: 2013Q2

REPORT INFORMATION
  Report Type: Spontaneous
  Country: US (occurrence: US)
  Receive Date: 20130502
  Receipt Date: 20130502
  Transmission Date: 20140414
  Serious: Yes (Other)
  Sender: FDA-Public Use
  Company Number: US-PFIZER INC-2013136713

PATIENT
  Sex: Female

DRUGS (3)
  1. LYRICA [Suspect]
     Indication: PAIN
     Dosage: 200 MG, 2X/DAY
     Dates: start: 2009
  2. LYRICA [Suspect]
     Dosage: 50 MG, 2X/DAY
  3. LYRICA [Suspect]
     Dosage: 200 MG, 1X/DAY

REACTIONS (6)
  - Drug dependence [Unknown]
  - Feeling abnormal [Unknown]
  - Night sweats [Unknown]
  - Nausea [Unknown]
  - Insomnia [Unknown]
  - Discomfort [Unknown]
